FAERS Safety Report 5597335-6 (Version None)
Quarter: 2007Q4

REPORT INFORMATION
  Report Type: 
  Country: None (occurrence: None)
  Receive Date: 20071221
  Receipt Date: 20071005
  Transmission Date: 20080405
  Serious: Yes (Other)
  Sender: FDA-Public Use
  Company Number: SPV1-2007-04429

PATIENT
  Age: 5 Year
  Sex: Male

DRUGS (2)
  1. VYVANSE [Suspect]
     Dosage: 30 MG, ORAL
     Route: 048
     Dates: start: 20070901, end: 20070901
  2. ADDERALL XR 10 [Concomitant]

REACTIONS (2)
  - OFF LABEL USE [None]
  - PSYCHOTIC DISORDER [None]
